FAERS Safety Report 8151584-1 (Version None)
Quarter: 2012Q1

REPORT INFORMATION
  Report Type: 
  Country: None (occurrence: None)
  Receive Date: 20120220
  Receipt Date: 20120216
  Transmission Date: 20120608
  Serious: Yes (Life-Threatening, Hospitalization)
  Sender: FDA-Public Use
  Company Number: ES-ASTRAZENECA-2012SE11065

PATIENT
  Age: 36 Year
  Sex: Male

DRUGS (2)
  1. EMLA [Suspect]
     Indication: LASER THERAPY
     Dosage: 3 HOURS, 25 MG/G CREAM TUBE, ONE TUBE OF 30G
     Route: 061
     Dates: start: 20111119, end: 20111119
  2. CIPROFLOXACIN HCL [Concomitant]
     Indication: PROSTATITIS
     Route: 048
     Dates: start: 20111119

REACTIONS (3)
  - PARAESTHESIA [None]
  - SOMNOLENCE [None]
  - METHAEMOGLOBINAEMIA [None]
